FAERS Safety Report 5814686-8 (Version None)
Quarter: 2008Q3

REPORT INFORMATION
  Report Type: 
  Country: None (occurrence: None)
  Receive Date: 20080718
  Receipt Date: 20080419
  Transmission Date: 20090109
  Serious: No
  Sender: FDA-Public Use
  Company Number: US-KINGPHARMUSA00001-K200800482

PATIENT

DRUGS (3)
  1. LEVOXYL [Suspect]
     Indication: THYROID DISORDER
     Dosage: 125 MCG, QD
     Route: 048
  2. LEVOXYL [Suspect]
     Dosage: 125 MCG, QD
     Route: 048
  3. LIPITOR [Concomitant]
     Indication: BLOOD CHOLESTEROL INCREASED
     Dosage: UNK, TIW

REACTIONS (5)
  - BLOOD THYROID STIMULATING HORMONE DECREASED [None]
  - EXPIRED DRUG ADMINISTERED [None]
  - INCORRECT DOSE ADMINISTERED [None]
  - THYROGLOBULIN INCREASED [None]
  - THYROID FUNCTION TEST ABNORMAL [None]
